FAERS Safety Report 8971140 (Version 1)
Quarter: 2012Q4

REPORT INFORMATION
  Report Type: 
  Country: GB (occurrence: GB)
  Receive Date: 20121217
  Receipt Date: 20121217
  Transmission Date: 20130627
  Serious: Yes (Hospitalization)
  Sender: FDA-Public Use
  Company Number: GB-PFIZER INC-2012315254

PATIENT
  Age: 28 Year
  Sex: Male

DRUGS (5)
  1. GENOTROPIN [Suspect]
     Dosage: 0.2 mg, 1x/day, 7 injections/week
     Route: 058
     Dates: start: 20090728
  2. THYROXINE [Concomitant]
     Indication: HYPOTHYROIDISM
     Dosage: UNK
     Dates: start: 20050729
  3. DESMOPRESSIN [Concomitant]
     Indication: DIABETES INSIPIDUS
     Dosage: UNK
     Dates: start: 20080925
  4. HYDROCORTISONE [Concomitant]
     Indication: ADRENAL INSUFFICIENCY
     Dosage: UNK
     Dates: start: 20071029
  5. NEBIDO [Concomitant]
     Indication: HYPOGONADISM
     Dosage: UNK
     Dates: start: 20080611

REACTIONS (1)
  - Gastric disorder [Unknown]
